FAERS Safety Report 25005924 (Version 1)
Quarter: 2025Q1

REPORT INFORMATION
  Report Type: Spontaneous
  Country: US (occurrence: US)
  Receive Date: 20250224
  Receipt Date: 20250224
  Transmission Date: 20250409
  Serious: Yes (Other)
  Sender: IOVANCE BIOTHERAPEUTICS MANUFACTURING LLC
  Company Number: CA-IOVANCE BIOTHERAPEUTICS INC.-IOV2025000013

PATIENT

DRUGS (1)
  1. PROLEUKIN [Suspect]
     Active Substance: ALDESLEUKIN
     Indication: Product used for unknown indication
     Route: 042

REACTIONS (3)
  - Febrile neutropenia [Recovered/Resolved]
  - Hypotension [Unknown]
  - Tachycardia [Unknown]
